FAERS Safety Report 7338469-5 (Version None)
Quarter: 2011Q1

REPORT INFORMATION
  Report Type: 
  Country: None (occurrence: None)
  Receive Date: 20110308
  Receipt Date: 20110223
  Transmission Date: 20110831
  Serious: Yes (Hospitalization, Other)
  Sender: FDA-Public Use
  Company Number: FR-ELI_LILLY_AND_COMPANY-FR201103001295

PATIENT
  Age: 44 Year
  Sex: Female

DRUGS (5)
  1. NOCTRAN 10 [Concomitant]
     Dates: start: 20090901
  2. ABILIFY [Concomitant]
     Indication: MANIA
     Dosage: 5 MG, DAILY (1/D)
     Route: 048
     Dates: start: 20090901, end: 20101006
  3. KALETRA [Concomitant]
     Indication: HIV TEST POSITIVE
     Dates: start: 20091006
  4. CYMBALTA [Suspect]
     Indication: DEPRESSION
     Dosage: 60 MG, DAILY (1/D)
     Route: 048
     Dates: start: 20090901, end: 20101006
  5. RIVOTRIL [Concomitant]
     Dosage: UNK, UNK
     Dates: start: 20090901

REACTIONS (6)
  - HYPONATRAEMIA [None]
  - WEIGHT INCREASED [None]
  - ASPARTATE AMINOTRANSFERASE INCREASED [None]
  - ALANINE AMINOTRANSFERASE INCREASED [None]
  - BLOOD ALKALINE PHOSPHATASE INCREASED [None]
  - GAMMA-GLUTAMYLTRANSFERASE INCREASED [None]
